FAERS Safety Report 14000610 (Version 5)
Quarter: 2020Q3

REPORT INFORMATION
  Report Type: Spontaneous
  Country: US (occurrence: US)
  Receive Date: 20170922
  Receipt Date: 20200803
  Transmission Date: 20201102
  Serious: Yes (Other)
  Sender: FDA-Public Use
  Company Number: US-BRISTOL-MYERS SQUIBB COMPANY-BMS-2017-083955

PATIENT
  Sex: Female
  Weight: 68 kg

DRUGS (4)
  1. OPDIVO [Suspect]
     Active Substance: NIVOLUMAB
     Indication: NON-SMALL CELL LUNG CANCER
     Dosage: UNK UNK, Q2WK
     Route: 042
     Dates: start: 201605, end: 201701
  2. URSODIOL. [Concomitant]
     Active Substance: URSODIOL
     Indication: PRODUCT USED FOR UNKNOWN INDICATION
     Route: 065
  3. CYTOMEL [Concomitant]
     Active Substance: LIOTHYRONINE SODIUM
     Indication: PRODUCT USED FOR UNKNOWN INDICATION
     Route: 065
  4. SYNTHROID [Concomitant]
     Active Substance: LEVOTHYROXINE SODIUM
     Indication: PRODUCT USED FOR UNKNOWN INDICATION
     Route: 065

REACTIONS (13)
  - Cholangitis [Unknown]
  - Dizziness [Unknown]
  - Fatigue [Unknown]
  - Weight increased [Unknown]
  - Hepatitis [Unknown]
  - Biliary tract infection [Unknown]
  - Arthralgia [Unknown]
  - Colitis microscopic [Recovering/Resolving]
  - Peripheral swelling [Unknown]
  - Alopecia [Unknown]
  - Liver abscess [Unknown]
  - Metastases to spine [Unknown]
  - Contusion [Unknown]
